FAERS Safety Report 4663855-1 (Version None)
Quarter: 2005Q2

REPORT INFORMATION
  Report Type: 
  Country: None (occurrence: None)
  Receive Date: 20050516
  Receipt Date: 20050428
  Transmission Date: 20051028
  Serious: Yes (Hospitalization)
  Sender: FDA-Public Use
  Company Number: DSA_26390_2005

PATIENT
  Age: 79 Year
  Sex: Female

DRUGS (2)
  1. MASDIL [Suspect]
     Indication: MYOCARDIAL ISCHAEMIA
     Dosage: 180 MG Q DAY PO
     Route: 048
     Dates: start: 20020606, end: 20020609
  2. AMIODARONE HYDROCHLORIDE [Suspect]
     Dosage: 400 MG Q DAY PO
     Route: 048
     Dates: start: 20011020, end: 20020609

REACTIONS (3)
  - BRADYARRHYTHMIA [None]
  - BUNDLE BRANCH BLOCK LEFT [None]
  - PULMONARY OEDEMA [None]
